FAERS Safety Report 9136871 (Version 1)
Quarter: 2013Q1

REPORT INFORMATION
  Report Type: Report from Study
  Country: US (occurrence: US)
  Receive Date: 20130304
  Receipt Date: 20130304
  Transmission Date: 20140127
  Serious: No
  Sender: FDA-Public Use
  Company Number: US-ABBOTT-12P-163-0939433-00

PATIENT
  Age: 58 Year
  Sex: Male

DRUGS (1)
  1. ANDROGEL 1% [Suspect]
     Indication: BLOOD TESTOSTERONE DECREASED
     Dosage: 4 PUMPS A DAY
     Dates: start: 201105, end: 201107

REACTIONS (6)
  - Weight decreased [Recovered/Resolved]
  - Hair texture abnormal [Recovered/Resolved]
  - Hair colour changes [Recovered/Resolved]
  - Hair growth abnormal [Recovered/Resolved]
  - Energy increased [Recovered/Resolved]
  - Therapeutic response unexpected [Unknown]
